FAERS Safety Report 9613332 (Version 3)
Quarter: 2014Q1

REPORT INFORMATION
  Report Type: Spontaneous
  Country: US (occurrence: US)
  Receive Date: 20131010
  Receipt Date: 20140228
  Transmission Date: 20141002
  Serious: Yes (Death, Hospitalization)
  Sender: FDA-Public Use
  Company Number: US-B.I. PHARMACEUTICALS,INC./RIDGEFIELD-2013-BI-31807BP

PATIENT
  Age: 86 Year
  Sex: Male
  Weight: 74.39 kg

DRUGS (19)
  1. PRADAXA [Suspect]
     Indication: ATRIAL FIBRILLATION
     Dosage: 300 MG
     Route: 048
     Dates: start: 201111, end: 20120417
  2. PRADAXA [Suspect]
     Indication: ATRIAL FLUTTER
  3. METFORMIN HCL [Concomitant]
     Route: 065
  4. FUROSEMIDE [Concomitant]
     Dosage: 40 MG
     Route: 048
  5. CARVEDILOL [Concomitant]
     Dosage: 50 MG
     Route: 048
  6. KLOR-CON [Concomitant]
     Dosage: 20 MEQ
     Route: 048
  7. SIMVASTATIN [Concomitant]
     Indication: HYPERLIPIDAEMIA
     Dosage: 40 MG
     Route: 048
  8. DIGOXIN [Concomitant]
     Dosage: 125 MCG
     Route: 048
  9. FLOMAX [Concomitant]
     Dosage: 0.4 MG
     Route: 048
  10. RAMIPRIL [Concomitant]
     Dosage: 5 MG
     Route: 048
  11. ASPIRIN [Concomitant]
     Dosage: 81 MG
     Route: 048
     Dates: end: 20120418
  12. GLIPIZIDE XL [Concomitant]
     Dosage: 2.5 MG
     Route: 048
  13. VITA ZINC [Concomitant]
     Route: 065
  14. JALYN [Concomitant]
     Route: 048
  15. LEVOTHYROXINE SODIUM [Concomitant]
     Dosage: 50 MCG
     Route: 048
  16. NEXIUM [Concomitant]
     Dosage: 80 MG
     Route: 048
  17. MULTIVITAMIN [Concomitant]
     Route: 048
  18. NITROGLYCERIN [Concomitant]
     Indication: CHEST PAIN
     Route: 065
  19. SITAGLIPTIN [Concomitant]
     Dosage: 50 MG
     Route: 048

REACTIONS (5)
  - Intraventricular haemorrhage [Fatal]
  - Gastrointestinal haemorrhage [Unknown]
  - Fall [Unknown]
  - Coagulopathy [Unknown]
  - Head injury [Unknown]
